FAERS Safety Report 26127701 (Version 2)
Quarter: 2025Q4

REPORT INFORMATION
  Report Type: Spontaneous
  Country: EU (occurrence: EU)
  Receive Date: 20251206
  Receipt Date: 20251215
  Transmission Date: 20260118
  Serious: Yes (Other)
  Sender: BOEHRINGER INGELHEIM
  Company Number: None

PATIENT
  Age: 84 Year
  Sex: Male
  Weight: 103 kg

DRUGS (8)
  1. JARDIANCE [Suspect]
     Active Substance: EMPAGLIFLOZIN
     Indication: Product used for unknown indication
  2. Sedacoron 200 mg - Tabletten [Concomitant]
     Indication: Product used for unknown indication
  3. Torasemid Hexal 5 mg - Tabletten [Concomitant]
     Indication: Product used for unknown indication
  4. Concor 5 mg - Filmtabletten [Concomitant]
     Indication: Product used for unknown indication
  5. PHENPROCOUMON [Concomitant]
     Active Substance: PHENPROCOUMON
     Indication: Atrial fibrillation
     Dosage: DOSIERUNG VON 1,5 TBL PRO WOCHE AUFGETEILT AUF 5-6 EINZELDOSEN
  6. ROSUVASTATIN [Concomitant]
     Active Substance: ROSUVASTATIN
     Indication: Product used for unknown indication
     Dosage: ROSUVASTATIN 10 MG
  7. ROSUVASTATIN [Concomitant]
     Active Substance: ROSUVASTATIN
     Dosage: ROSUVASTATIN 10 MG
  8. Oleovit D3 Tropfen [Concomitant]
     Indication: Product used for unknown indication

REACTIONS (2)
  - Balanoposthitis [Not Recovered/Not Resolved]
  - Haemorrhage [Not Recovered/Not Resolved]

NARRATIVE: CASE EVENT DATE: 20251121
